FAERS Safety Report 18855340 (Version 1)
Quarter: 2021Q1

REPORT INFORMATION
  Report Type: Spontaneous
  Country: RU (occurrence: RU)
  Receive Date: 20210205
  Receipt Date: 20210205
  Transmission Date: 20210420
  Serious: Yes (Hospitalization)
  Sender: FDA-Public Use
  Company Number: RU-ALLERGAN-2105605US

PATIENT

DRUGS (1)
  1. TIMOLOL UNK [Suspect]
     Active Substance: TIMOLOL
     Indication: OPEN ANGLE GLAUCOMA
     Dosage: UNK, BID
     Route: 047

REACTIONS (3)
  - Hypotension [Unknown]
  - Atrioventricular block second degree [Unknown]
  - Bradycardia [Unknown]
